FAERS Safety Report 18031625 (Version 1)
Quarter: 2020Q3

REPORT INFORMATION
  Report Type: Spontaneous
  Country: US (occurrence: US)
  Receive Date: 20200716
  Receipt Date: 20200716
  Transmission Date: 20201103
  Serious: Yes (Death)
  Sender: FDA-Public Use
  Company Number: None

PATIENT
  Age: 47 Year
  Sex: Male
  Weight: 113 kg

DRUGS (2)
  1. REMDESIVIR. [Suspect]
     Active Substance: REMDESIVIR
     Dates: start: 20200701, end: 20200712
  2. LISTED ON PREVIOUS MEDWATCH [Concomitant]

REACTIONS (6)
  - Coagulopathy [None]
  - Liver function test increased [None]
  - Ischaemic hepatitis [None]
  - Liver disorder [None]
  - Disseminated intravascular coagulation [None]
  - Acute kidney injury [None]

NARRATIVE: CASE EVENT DATE: 20200715
